FAERS Safety Report 6973587-2 (Version None)
Quarter: 2010Q3

REPORT INFORMATION
  Report Type: 
  Country: None (occurrence: None)
  Receive Date: 20100909
  Receipt Date: 20100902
  Transmission Date: 20110219
  Serious: Yes (Hospitalization, Other)
  Sender: FDA-Public Use
  Company Number: HQWYE154110OCT03

PATIENT
  Sex: Female

DRUGS (3)
  1. PREMPRO [Suspect]
     Dosage: UNSPECIFIED
     Route: 048
  2. PROVERA [Suspect]
     Dosage: UNSPECIFIED
     Route: 048
  3. PREMARIN [Suspect]
     Dosage: UNSPECIFIED
     Route: 048

REACTIONS (1)
  - BREAST CANCER [None]
